FAERS Safety Report 8076729-3 (Version None)
Quarter: 2012Q1

REPORT INFORMATION
  Report Type: 
  Country: None (occurrence: None)
  Receive Date: 20120127
  Receipt Date: 20120119
  Transmission Date: 20120608
  Serious: Yes (Other)
  Sender: FDA-Public Use
  Company Number: CHPA2012US001748

PATIENT
  Age: 27 Year
  Sex: Female

DRUGS (2)
  1. ALLEGRA [Concomitant]
     Indication: HYPERSENSITIVITY
  2. EXCEDRIN EXTRA STRENGTH TABLETS [Suspect]
     Indication: HEADACHE
     Dosage: 2 DF, ONCE/SINGLE
     Route: 048
     Dates: start: 20111023, end: 20111023

REACTIONS (3)
  - OEDEMA PERIPHERAL [None]
  - SWOLLEN TONGUE [None]
  - THROAT TIGHTNESS [None]
